FAERS Safety Report 7503223-8 (Version None)
Quarter: 2011Q2

REPORT INFORMATION
  Report Type: 
  Country: None (occurrence: None)
  Receive Date: 20110525
  Receipt Date: 20110304
  Transmission Date: 20111010
  Serious: No
  Sender: FDA-Public Use
  Company Number: A0916762A

PATIENT
  Age: 66 Year
  Sex: Female

DRUGS (3)
  1. BACTROBAN [Suspect]
     Indication: IMPETIGO
     Dosage: 3APP THREE TIMES PER DAY
     Route: 061
     Dates: start: 20110217, end: 20110219
  2. LEVOTHYROXINE SODIUM [Concomitant]
  3. MULTI-VITAMIN [Concomitant]

REACTIONS (1)
  - CONDITION AGGRAVATED [None]
